FAERS Safety Report 7500581-5 (Version None)
Quarter: 2011Q2

REPORT INFORMATION
  Report Type: 
  Country: None (occurrence: None)
  Receive Date: 20110524
  Receipt Date: 20110511
  Transmission Date: 20111010
  Serious: Yes (Other)
  Sender: FDA-Public Use
  Company Number: US-BAYER-2010-003032

PATIENT
  Age: 34 Year
  Sex: Female
  Weight: 100 kg

DRUGS (4)
  1. YAZ [Suspect]
     Indication: CONTRACEPTION
     Dosage: 1 UNK, UNK
     Route: 048
     Dates: start: 20070929, end: 20081110
  2. ASCORBIC ACID [Concomitant]
     Route: 048
  3. SINGULAIR [Concomitant]
     Dosage: 10 MG, UNK
     Route: 048
  4. NSAID'S [Concomitant]

REACTIONS (4)
  - CHOLELITHIASIS [None]
  - BILIARY COLIC [None]
  - ABDOMINAL PAIN [None]
  - CHOLECYSTITIS CHRONIC [None]
